FAERS Safety Report 8819386 (Version 4)
Quarter: 2013Q1

REPORT INFORMATION
  Report Type: Spontaneous
  Country: US (occurrence: None)
  Receive Date: 20121003
  Receipt Date: 20130124
  Transmission Date: 20140127
  Serious: Yes (Life-Threatening)
  Sender: FDA-Public Use
  Company Number: 1209-502

PATIENT
  Age: 72 Year
  Sex: Male

DRUGS (12)
  1. EYLEA [Suspect]
     Indication: AGE-RELATED MACULAR DEGENERATION
     Dosage: INTRAVITREAL
     Dates: start: 20081105
  2. INSULIN (INSULIN) [Concomitant]
  3. ASPIRIN (ACETYLSALICYLIC ACID) [Concomitant]
  4. HYDRALAZINE (HYDRALAZINE) [Concomitant]
  5. EFFIENT (PRASUGREL HYDROCHLORIDE) [Concomitant]
  6. ISOSORBIDE (ISOSORBIDE) [Concomitant]
  7. OMEPRAZOLE (OMEPRAZOLE) [Concomitant]
  8. COREG (CARVEDILOL) [Concomitant]
  9. NORTRIPTYLIN (NORTRIPTYLINE HYDROCHLORIDE) [Concomitant]
  10. PRESERVISION (OCUVITE /01762701/) [Concomitant]
  11. ZYRTEC (CETIRIZINE HYDROCHLORIDE) [Concomitant]
  12. GABAPENTIN (GABAPENTIN) [Concomitant]

REACTIONS (1)
  - Myocardial infarction [None]
